FAERS Safety Report 4765897-4 (Version None)
Quarter: 2005Q3

REPORT INFORMATION
  Report Type: 
  Country: None (occurrence: None)
  Receive Date: 20050908
  Receipt Date: 20050908
  Transmission Date: 20060218
  Serious: Yes (Other)
  Sender: FDA-Public Use
  Company Number: None

PATIENT
  Sex: Female
  Weight: 97.0698 kg

DRUGS (4)
  1. ZOCOR [Suspect]
     Indication: HYPERLIPIDAEMIA
     Dosage: 1 DAILY
     Dates: start: 20050701
  2. ALDACTAZIDE [Concomitant]
  3. DARVOCETT [Concomitant]
  4. PLAVIX [Concomitant]

REACTIONS (2)
  - MYALGIA [None]
  - PHARMACEUTICAL PRODUCT COMPLAINT [None]
